FAERS Safety Report 16105163 (Version 3)
Quarter: 2019Q2

REPORT INFORMATION
  Report Type: Spontaneous
  Country: US (occurrence: US)
  Receive Date: 20190322
  Receipt Date: 20190525
  Transmission Date: 20190711
  Serious: Yes (Congenital Anomaly, Other)
  Sender: FDA-Public Use
  Company Number: PHEH2019US012562

PATIENT
  Sex: Female

DRUGS (2)
  1. ZOFRAN [Suspect]
     Active Substance: ONDANSETRON HYDROCHLORIDE
     Indication: FOETAL EXPOSURE DURING PREGNANCY
     Dosage: MOTHER^S DOSE: 04 MG, UNK
     Route: 064
  2. ZOFRAN ODT [Suspect]
     Active Substance: ONDANSETRON HYDROCHLORIDE
     Indication: FOETAL EXPOSURE DURING PREGNANCY
     Dosage: MOTHER^S DOSE: 08 MG, PRN
     Route: 064

REACTIONS (6)
  - Heart disease congenital [Unknown]
  - Congenital skin dimples [Unknown]
  - Foetal exposure during pregnancy [Unknown]
  - Haemangioma [Unknown]
  - Injury [Unknown]
  - Fallot^s tetralogy [Unknown]
